FAERS Safety Report 5148383-1 (Version None)
Quarter: 2006Q4

REPORT INFORMATION
  Report Type: 
  Country: None (occurrence: None)
  Receive Date: 20061107
  Receipt Date: 20061025
  Transmission Date: 20070319
  Serious: Yes (Other)
  Sender: FDA-Public Use
  Company Number: 2006BH014332

PATIENT
  Age: 43 Year
  Sex: Female
  Weight: 72.4 kg

DRUGS (1)
  1. LACTATED RINGER'S IN PLASTIC CONTAINER [Suspect]
     Indication: SURGERY
     Dosage: 125 ML; EVERY HR; IV
     Route: 042
     Dates: start: 20061019, end: 20061019

REACTIONS (5)
  - CHEST DISCOMFORT [None]
  - COUGH [None]
  - DYSPNOEA [None]
  - HYPERTENSION [None]
  - PROCEDURAL COMPLICATION [None]
